FAERS Safety Report 18156774 (Version 1)
Quarter: 2020Q3

REPORT INFORMATION
  Report Type: Spontaneous
  Country: US (occurrence: US)
  Receive Date: 20200817
  Receipt Date: 20200817
  Transmission Date: 20201103
  Serious: No
  Sender: FDA-Public Use
  Company Number: None

PATIENT
  Age: 72 Year
  Sex: Female
  Weight: 85.28 kg

DRUGS (10)
  1. SPIRINOLACTONE [Concomitant]
     Active Substance: SPIRONOLACTONE
  2. JANUVIA [Concomitant]
     Active Substance: SITAGLIPTIN PHOSPHATE
  3. GLIPIZIDE ER [Concomitant]
     Active Substance: GLIPIZIDE
  4. KLOR?CON M20 [Concomitant]
     Active Substance: POTASSIUM CHLORIDE
  5. ZETIA [Concomitant]
     Active Substance: EZETIMIBE
  6. ALLOPURINOL. [Concomitant]
     Active Substance: ALLOPURINOL
  7. TASIGNA [Suspect]
     Active Substance: NILOTINIB
     Indication: CHRONIC MYELOID LEUKAEMIA
     Route: 048
     Dates: start: 20200424
  8. WARFARIN [Concomitant]
     Active Substance: WARFARIN
  9. VALIUM [Concomitant]
     Active Substance: DIAZEPAM
  10. TORESEMIDE [Concomitant]
     Active Substance: TORSEMIDE

REACTIONS (2)
  - Dry skin [None]
  - Pruritus [None]

NARRATIVE: CASE EVENT DATE: 20200817
